FAERS Safety Report 6448551-2 (Version None)
Quarter: 2009Q4

REPORT INFORMATION
  Report Type: 
  Country: None (occurrence: None)
  Receive Date: 20091120
  Receipt Date: 20091109
  Transmission Date: 20100525
  Serious: Yes (Hospitalization)
  Sender: FDA-Public Use
  Company Number: JP-PFIZER INC-2009297560

PATIENT
  Age: 80 Year
  Sex: Male

DRUGS (2)
  1. CARDENALIN [Suspect]
     Dosage: 4 MG, PER DAY
     Route: 048
  2. INSULIN [Concomitant]
     Dosage: UNK
     Route: 058

REACTIONS (1)
  - HYPOGLYCAEMIA [None]
